FAERS Safety Report 4960524-5 (Version None)
Quarter: 2006Q1

REPORT INFORMATION
  Report Type: 
  Country: None (occurrence: None)
  Receive Date: 20060331
  Receipt Date: 20060331
  Transmission Date: 20060701
  Serious: Yes (Life-Threatening, Hospitalization)
  Sender: FDA-Public Use
  Company Number: None

PATIENT
  Age: 55 Year
  Sex: Male
  Weight: 72 kg

DRUGS (2)
  1. PEGINTERFERON ALPHA-2A [Suspect]
     Indication: HEPATITIS C
     Dosage: 180MCG/0.5ML  Q WEEK   SQ
     Route: 058
     Dates: start: 20050722, end: 20060309
  2. INSULIN [Concomitant]

REACTIONS (3)
  - ADVERSE DRUG REACTION [None]
  - HYPERGLYCAEMIA [None]
  - INSULIN RESISTANCE [None]
